FAERS Safety Report 7740273-0 (Version None)
Quarter: 2011Q3

REPORT INFORMATION
  Report Type: 
  Country: None (occurrence: None)
  Receive Date: 20110909
  Receipt Date: 20110829
  Transmission Date: 20111222
  Serious: Yes (Hospitalization)
  Sender: FDA-Public Use
  Company Number: DE-ROCHE-801462

PATIENT
  Sex: Male
  Weight: 93 kg

DRUGS (5)
  1. OXALIPLATIN [Suspect]
     Dosage: 2ND CYCLE ON 20 JUN 2011
     Route: 042
  2. RAMIPRIL [Concomitant]
     Indication: HYPERTENSION
     Route: 048
     Dates: start: 20030101
  3. AMLODIPINE [Concomitant]
     Indication: HYPERTENSION
     Route: 048
     Dates: start: 20020101
  4. CAPECITABINE [Suspect]
     Dosage: 2ND CYCLE 20 JUN 2011 UNTIL 03 JUL 2011
     Route: 048
  5. DIABESIN [Concomitant]
     Route: 048
     Dates: start: 20050101

REACTIONS (3)
  - URINARY RETENTION [None]
  - DIARRHOEA [None]
  - ENTERITIS [None]
